FAERS Safety Report 26011129 (Version 1)
Quarter: 2025Q4

REPORT INFORMATION
  Report Type: Spontaneous
  Country: US (occurrence: None)
  Receive Date: 20251106
  Receipt Date: 20251106
  Transmission Date: 20260117
  Serious: Yes (Hospitalization)
  Sender: FDA-CTU
  Company Number: None

PATIENT
  Sex: Female

DRUGS (1)
  1. CAPECITABINE [Suspect]
     Active Substance: CAPECITABINE
     Indication: Neoplasm malignant
     Dosage: 1000 MG BID 14DSON, 7 OFF ORAL
     Route: 048
     Dates: start: 20250814

REACTIONS (2)
  - Atrial fibrillation [None]
  - Cholecystectomy [None]
